APPROVED DRUG PRODUCT: SUNITINIB MALATE
Active Ingredient: SUNITINIB MALATE
Strength: EQ 25MG BASE
Dosage Form/Route: CAPSULE;ORAL
Application: A201275 | Product #002 | TE Code: AB
Applicant: MYLAN PHARMACEUTICALS INC
Approved: Dec 6, 2021 | RLD: No | RS: No | Type: RX